FAERS Safety Report 7245120-1 (Version None)
Quarter: 2011Q1

REPORT INFORMATION
  Report Type: 
  Country: None (occurrence: None)
  Receive Date: 20110118
  Receipt Date: 20110103
  Transmission Date: 20110831
  Serious: Yes (Hospitalization)
  Sender: FDA-Public Use
  Company Number: 20110012

PATIENT
  Age: 46 Year
  Sex: Female

DRUGS (4)
  1. TOPAMAX [Concomitant]
  2. SYNTHROID [Concomitant]
  3. DEXAMETHASONE SODIUM PHOSPHATE INJECTION, USP 4 MG/ML [Suspect]
     Indication: PAIN
     Dosage: 2 ADMINISTRATIONS, INTRA-ARTICULAR
     Route: 014
     Dates: start: 20101210, end: 20101210
  4. DEXAMETHASONE SODIUM PHOSPHATE INJECTION, USP 4 MG/ML [Suspect]
     Indication: BURSITIS
     Dosage: 2 ADMINISTRATIONS, INTRA-ARTICULAR
     Route: 014
     Dates: start: 20101210, end: 20101210

REACTIONS (10)
  - ARTHRALGIA [None]
  - PYREXIA [None]
  - CHILLS [None]
  - RED BLOOD CELL COUNT DECREASED [None]
  - VIRAL INFECTION [None]
  - WHITE BLOOD CELL COUNT DECREASED [None]
  - OEDEMA PERIPHERAL [None]
  - BACK PAIN [None]
  - HEADACHE [None]
  - NECK PAIN [None]
